FAERS Safety Report 23628841 (Version 1)
Quarter: 2024Q1

REPORT INFORMATION
  Report Type: Spontaneous
  Country: US (occurrence: US)
  Receive Date: 20240313
  Receipt Date: 20240313
  Transmission Date: 20240409
  Serious: Yes (Other)
  Sender: FDA-Public Use
  Company Number: US-AMGEN-USASP2024048477

PATIENT

DRUGS (6)
  1. RITUXIMAB [Suspect]
     Active Substance: RITUXIMAB
     Indication: Mucopolysaccharidosis I
     Dosage: (DAY -10, 28)
     Route: 065
  2. BUSULFAN [Concomitant]
     Active Substance: BUSULFAN
     Indication: Mucopolysaccharidosis I
     Dosage: 90 MILLIGRAM/H/L
     Route: 065
  3. FLUDARABINE [Concomitant]
     Active Substance: FLUDARABINE PHOSPHATE
     Indication: Mucopolysaccharidosis I
     Dosage: 160 MICROGRAM/SQ. METER
  4. FLUDARABINE [Concomitant]
     Active Substance: FLUDARABINE PHOSPHATE
     Dosage: 40 MICROGRAM/SQ. METER
  5. CLOFARABINE [Concomitant]
     Active Substance: CLOFARABINE
     Indication: Mucopolysaccharidosis I
     Dosage: 120 MILLIGRAM/SQ. METER
  6. CYCLOPHOSPHAMIDE [Concomitant]
     Active Substance: CYCLOPHOSPHAMIDE
     Indication: Immune-mediated cytopenia
     Dosage: 50 MILLIGRAM/KILOGRAM
     Route: 065

REACTIONS (4)
  - Graft versus host disease [Unknown]
  - Venoocclusive liver disease [Unknown]
  - Transplant failure [Recovered/Resolved]
  - Off label use [Unknown]
